FAERS Safety Report 22291776 (Version 1)
Quarter: 2023Q2

REPORT INFORMATION
  Report Type: Spontaneous
  Country: US (occurrence: None)
  Receive Date: 20230505
  Receipt Date: 20230505
  Transmission Date: 20230722
  Serious: Yes (Death)
  Sender: FDA-Public Use
  Company Number: None

PATIENT
  Age: 44 Year
  Sex: Female
  Weight: 83.9 kg

DRUGS (1)
  1. BREYANZI [Suspect]
     Active Substance: LISOCABTAGENE MARALEUCEL
     Dates: start: 20230406, end: 20230406

REACTIONS (18)
  - Cytokine release syndrome [None]
  - General physical health deterioration [None]
  - Malignant neoplasm progression [None]
  - Serum ferritin increased [None]
  - Renal failure [None]
  - Haemodialysis [None]
  - Tumour lysis syndrome [None]
  - Blood lactate dehydrogenase increased [None]
  - Hyperkalaemia [None]
  - Hyperphosphataemia [None]
  - Coagulopathy [None]
  - Liver function test abnormal [None]
  - Haemophagocytic lymphohistiocytosis [None]
  - Seizure [None]
  - Brain oedema [None]
  - Neurological decompensation [None]
  - Electroencephalogram abnormal [None]
  - Brain herniation [None]

NARRATIVE: CASE EVENT DATE: 20230421
